FAERS Safety Report 8956802 (Version 1)
Quarter: 2012Q4

REPORT INFORMATION
  Report Type: Spontaneous
  Country: US (occurrence: None)
  Receive Date: 20121205
  Receipt Date: 20121205
  Transmission Date: 20130627
  Serious: Yes (Death)
  Sender: FDA-Public Use
  Company Number: None

PATIENT
  Age: 75 Year
  Sex: Male

DRUGS (2)
  1. YERVOY BRISTOL MEYER SQUIBB [Suspect]
     Indication: MELANOMA
     Dosage: every 4 wks.  I.V.
Doses #3 + #4 never done due to problems
     Route: 042
     Dates: start: 20111216
  2. YERVOY BRISTOL MEYER SQUIBB [Suspect]
     Indication: MELANOMA
     Route: 042
     Dates: start: 20120120

REACTIONS (5)
  - Rash [None]
  - Wound secretion [None]
  - Diarrhoea [None]
  - Intestinal perforation [None]
  - Sepsis [None]
